FAERS Safety Report 9614276 (Version 2)
Quarter: 2013Q4

REPORT INFORMATION
  Report Type: Report from Study
  Country: JP (occurrence: JP)
  Receive Date: 20131011
  Receipt Date: 20131119
  Transmission Date: 20140711
  Serious: Yes (Death)
  Sender: FDA-Public Use
  Company Number: JP-ROCHE-1284418

PATIENT
  Age: 79 Year
  Sex: Male

DRUGS (6)
  1. METHOXY POLYETHYLENE GLYCOL-EPOETIN BETA [Suspect]
     Indication: NEPHROGENIC ANAEMIA
     Route: 058
     Dates: start: 20130924, end: 20130924
  2. DORMICUM (INJ) [Concomitant]
     Route: 042
  3. INOVAN [Concomitant]
     Indication: PROPHYLAXIS
     Route: 042
  4. PREDNISOLONE [Concomitant]
     Indication: MICROSCOPIC POLYANGIITIS
     Route: 042
  5. OMEPRAL [Concomitant]
     Indication: PROPHYLAXIS
     Route: 042
  6. LASIX [Concomitant]
     Indication: MICROSCOPIC POLYANGIITIS
     Route: 042

REACTIONS (1)
  - Anti-neutrophil cytoplasmic antibody positive vasculitis [Fatal]
